FAERS Safety Report 10343371 (Version 1)
Quarter: 2014Q3

REPORT INFORMATION
  Report Type: Spontaneous
  Country: DE (occurrence: None)
  Receive Date: 20140723
  Receipt Date: 20140723
  Transmission Date: 20150326
  Serious: Yes (Other)
  Sender: FDA-Public Use
  Company Number: SYM-2014-23290

PATIENT
  Age: 31 Year
  Sex: Female

DRUGS (1)
  1. METRONIDAZOLE (METRONDIAZOLE) [Suspect]
     Active Substance: METRONIDAZOLE
     Indication: CLOSTRIDIAL INFECTION
     Route: 048

REACTIONS (3)
  - Polyneuropathy [None]
  - Dizziness [None]
  - Visual impairment [None]

NARRATIVE: CASE EVENT DATE: 20140625
